FAERS Safety Report 5381466-X (Version None)
Quarter: 2007Q3

REPORT INFORMATION
  Report Type: 
  Country: None (occurrence: None)
  Receive Date: 20070709
  Receipt Date: 20070705
  Transmission Date: 20080115
  Serious: Yes (Hospitalization, Other)
  Sender: FDA-Public Use
  Company Number: US-BRISTOL-MYERS SQUIBB COMPANY-13835434

PATIENT
  Age: 69 Year
  Sex: Male
  Weight: 75 kg

DRUGS (13)
  1. ERBITUX [Suspect]
     Indication: NEOPLASM MALIGNANT
     Dates: start: 20070625, end: 20070625
  2. CISPLATIN [Suspect]
     Indication: NEOPLASM MALIGNANT
     Dates: start: 20070625, end: 20070625
  3. RADIATION THERAPY [Suspect]
     Indication: NEOPLASM MALIGNANT
  4. AMBIEN [Concomitant]
  5. KEFLEX [Concomitant]
  6. SLOW-MAG [Concomitant]
  7. HYTRIN [Concomitant]
  8. DECADRON [Concomitant]
  9. NEXIUM [Concomitant]
  10. DOXYCYCLINE [Concomitant]
  11. EMEND [Concomitant]
  12. MAGIC MOUTHWASH [Concomitant]
  13. CAPHOSOL [Concomitant]

REACTIONS (5)
  - ANOREXIA [None]
  - DEHYDRATION [None]
  - FATIGUE [None]
  - SINUS BRADYCARDIA [None]
  - STOMATITIS [None]
